FAERS Safety Report 11993123 (Version 1)
Quarter: 2016Q1

REPORT INFORMATION
  Report Type: Spontaneous
  Country: US (occurrence: None)
  Receive Date: 20160202
  Receipt Date: 20160202
  Transmission Date: 20160526
  Serious: Yes (Life-Threatening, Hospitalization, Disabling)
  Sender: FDA-Public Use
  Company Number: None

PATIENT
  Age: 58 Year
  Weight: 79.38 kg

DRUGS (3)
  1. TRAZODONE [Concomitant]
     Active Substance: TRAZODONE HYDROCHLORIDE
  2. CHANTIX [Suspect]
     Active Substance: VARENICLINE TARTRATE
     Indication: SMOKING CESSATION THERAPY
     Route: 048
     Dates: start: 20120930, end: 20130412
  3. DEPAKOTE [Concomitant]
     Active Substance: DIVALPROEX SODIUM

REACTIONS (14)
  - Influenza [None]
  - Glucose tolerance impaired [None]
  - Nasopharyngitis [None]
  - Hypomania [None]
  - Quality of life decreased [None]
  - Cognitive disorder [None]
  - Dizziness [None]
  - Seizure [None]
  - Bipolar disorder [None]
  - Cellulitis [None]
  - Tinnitus [None]
  - Emotional disorder [None]
  - Paranoia [None]
  - Brain injury [None]

NARRATIVE: CASE EVENT DATE: 20120901
